FAERS Safety Report 22166524 (Version 3)
Quarter: 2023Q2

REPORT INFORMATION
  Report Type: Spontaneous
  Country: US (occurrence: US)
  Receive Date: 20230403
  Receipt Date: 20230526
  Transmission Date: 20230721
  Serious: Yes (Other)
  Sender: FDA-Public Use
  Company Number: US-PFIZER INC-PV202300059444

PATIENT
  Age: 81 Year
  Sex: Female

DRUGS (2)
  1. IBRANCE [Suspect]
     Active Substance: PALBOCICLIB
     Indication: Hormone receptor positive HER2 negative breast cancer
     Dosage: 100 MG (TAKE ONE TABLET BY MOUTH DAILY CONSECUTIVE, FOLLOWED BY 7 DAYS OFF FOR A 28 DAY SUPPLY)
     Route: 048
  2. IBRANCE [Suspect]
     Active Substance: PALBOCICLIB
     Indication: Breast cancer stage II

REACTIONS (10)
  - Pneumonia [Unknown]
  - Arteriosclerosis coronary artery [Unknown]
  - Neoplasm progression [Unknown]
  - Cough [Unknown]
  - Nasopharyngitis [Unknown]
  - Musculoskeletal chest pain [Unknown]
  - Back pain [Unknown]
  - Feeling abnormal [Unknown]
  - Hiatus hernia [Unknown]
  - Anxiety [Unknown]

NARRATIVE: CASE EVENT DATE: 20230101
